FAERS Safety Report 9458560 (Version 1)
Quarter: 2013Q3

REPORT INFORMATION
  Report Type: Spontaneous
  Country: US (occurrence: US)
  Receive Date: 20130814
  Receipt Date: 20130814
  Transmission Date: 20140515
  Serious: No
  Sender: FDA-Public Use
  Company Number: US-BAYER-2013-098392

PATIENT
  Age: 52 Year
  Sex: Female
  Weight: 65.76 kg

DRUGS (6)
  1. ALEVE CAPLET [Suspect]
     Indication: ARTHRITIS
     Dosage: 2 DF, UNK
     Route: 048
     Dates: start: 201305
  2. SYNTHROID [Concomitant]
  3. VITAMIN E [Concomitant]
  4. VITAMIN D [Concomitant]
  5. HYALURONIC ACID [Concomitant]
  6. ZYMAMED [Concomitant]

REACTIONS (1)
  - Incorrect dose administered [None]
